FAERS Safety Report 7704789-5 (Version None)
Quarter: 2011Q3

REPORT INFORMATION
  Report Type: 
  Country: None (occurrence: None)
  Receive Date: 20110823
  Receipt Date: 20110816
  Transmission Date: 20111222
  Serious: Yes (Other)
  Sender: FDA-Public Use
  Company Number: US-PFIZER INC-2011189601

PATIENT
  Sex: Female
  Weight: 56.689 kg

DRUGS (8)
  1. AMPYRA [Suspect]
     Dosage: 10 MG, 2X/DAY
     Route: 048
     Dates: start: 20110301
  2. BACLOFEN [Concomitant]
     Dosage: UNK
  3. GABAPENTIN [Concomitant]
     Dosage: UNK
     Dates: start: 20110101
  4. MORNIFLUMATE [Concomitant]
     Dosage: UNK
  5. CELEBREX [Suspect]
     Indication: BACK DISORDER
     Dosage: UNK
     Dates: start: 20110803
  6. NOVOCAIN [Concomitant]
     Dosage: UNK
     Dates: start: 20070101
  7. AMPYRA [Suspect]
     Indication: GAIT DISTURBANCE
     Dosage: 10 MG, 2X/DAY
     Route: 048
     Dates: start: 20100301, end: 20101201
  8. LYRICA [Concomitant]
     Dosage: UNK
     Dates: start: 20060101

REACTIONS (8)
  - BACK PAIN [None]
  - MULTIPLE SCLEROSIS RELAPSE [None]
  - GAIT DISTURBANCE [None]
  - FALL [None]
  - FOOT FRACTURE [None]
  - BALANCE DISORDER [None]
  - DRUG EFFECT DECREASED [None]
  - EXERCISE TOLERANCE DECREASED [None]
